FAERS Safety Report 12897769 (Version 3)
Quarter: 2016Q4

REPORT INFORMATION
  Report Type: Spontaneous
  Country: AU (occurrence: AU)
  Receive Date: 20161031
  Receipt Date: 20161114
  Transmission Date: 20170207
  Serious: Yes (Hospitalization)
  Sender: FDA-Public Use
  Company Number: AU-BEH-2016074748

PATIENT
  Age: 40 Year
  Sex: Male
  Weight: 54 kg

DRUGS (2)
  1. PRIVIGEN [Suspect]
     Active Substance: HUMAN IMMUNOGLOBULIN G
     Dosage: 50 G, QMT
     Route: 042
     Dates: start: 201609, end: 201609
  2. PRIVIGEN [Suspect]
     Active Substance: HUMAN IMMUNOGLOBULIN G
     Indication: MYASTHENIA GRAVIS
     Dosage: 50 G, QMT
     Route: 042
     Dates: start: 20161014, end: 20161014

REACTIONS (8)
  - Balance disorder [Recovered/Resolved]
  - Migraine [Unknown]
  - Balance disorder [Unknown]
  - Headache [Recovered/Resolved]
  - Headache [Unknown]
  - Visual acuity reduced [Recovered/Resolved]
  - Migraine [Recovered/Resolved]
  - Visual acuity reduced [Unknown]

NARRATIVE: CASE EVENT DATE: 201609
